FAERS Safety Report 5516549-4 (Version None)
Quarter: 2007Q4

REPORT INFORMATION
  Report Type: 
  Country: None (occurrence: None)
  Receive Date: 20071114
  Receipt Date: 20070317
  Transmission Date: 20080405
  Serious: No
  Sender: FDA-Public Use
  Company Number: A0643469A

PATIENT
  Sex: Male

DRUGS (1)
  1. COMMIT [Suspect]

REACTIONS (4)
  - DRUG INEFFECTIVE [None]
  - GLOSSITIS [None]
  - NICOTINE DEPENDENCE [None]
  - TONGUE DISORDER [None]
